FAERS Safety Report 17290781 (Version 1)
Quarter: 2020Q1

REPORT INFORMATION
  Report Type: Spontaneous
  Country: PL (occurrence: PL)
  Receive Date: 20200121
  Receipt Date: 20200121
  Transmission Date: 20200409
  Serious: Yes (Other)
  Sender: FDA-Public Use
  Company Number: PL-TEVA-2020-PL-1169831

PATIENT
  Age: 4 Year
  Sex: Male
  Weight: 16.7 kg

DRUGS (6)
  1. ACTAVEN [Suspect]
     Active Substance: ISOTRETINOIN
     Indication: NEUROBLASTOMA
     Dosage: 40 MG
     Route: 048
     Dates: start: 20160624, end: 20160830
  2. THIAMINE. [Concomitant]
     Active Substance: THIAMINE
     Indication: SUPPORTIVE CARE
     Dosage: DOSE: 1 TABLET
     Route: 048
  3. ACTAVEN [Suspect]
     Active Substance: ISOTRETINOIN
     Dosage: 60 MG
     Route: 048
     Dates: start: 20160520
  4. NYSTATIN. [Concomitant]
     Active Substance: NYSTATIN
     Indication: SUPPORTIVE CARE
     Dosage: 2 ML
     Route: 048
  5. VIGANTOL [Concomitant]
     Indication: SUPPORTIVE CARE
     Dosage: DOSE: 2 DROPS
     Route: 048
  6. BISEPTOL 480 [Concomitant]
     Indication: SUPPORTIVE CARE
     Dosage: DOSE: 1/2 OF TABLET
     Route: 048

REACTIONS (6)
  - Off label use [Recovered/Resolved]
  - Bone pain [Recovered/Resolved]
  - Off label use [Recovered/Resolved]
  - Skin lesion [Recovered/Resolved]
  - Skin lesion [Recovered/Resolved]
  - Bone pain [Recovered/Resolved]

NARRATIVE: CASE EVENT DATE: 20160520
